FAERS Safety Report 21941206 (Version 1)
Quarter: 2023Q1

REPORT INFORMATION
  Report Type: Spontaneous
  Country: NL (occurrence: NL)
  Receive Date: 20230202
  Receipt Date: 20230202
  Transmission Date: 20230418
  Serious: No
  Sender: FDA-Public Use
  Company Number: None

PATIENT
  Sex: Male
  Weight: 74 kg

DRUGS (10)
  1. CABOMETYX [Suspect]
     Active Substance: CABOZANTINIB S-MALATE
     Indication: Renal cell carcinoma stage IV
     Dosage: 60 MG, QD
     Dates: start: 20220608, end: 20220629
  2. ACETAMINOPHEN [Concomitant]
     Active Substance: ACETAMINOPHEN
     Dosage: CAPSULE, 500 MG (MILLIGRAM)
  3. FENTANYL [Concomitant]
     Active Substance: FENTANYL
     Dosage: PLEISTER, 100 ?G (MICROGRAM) PER UUR
  4. XARELTO [Concomitant]
     Active Substance: RIVAROXABAN
     Dosage: TABLET, 20 MG (MILLIGRAM)
  5. LEVOTHYROXINE [Concomitant]
     Active Substance: LEVOTHYROXINE
     Dosage: TABLET, 25 ?G (MICROGRAM)
  6. PANTOPRAZOLE SODIUM [Concomitant]
     Active Substance: PANTOPRAZOLE SODIUM
     Dosage: MAAGSAPRESISTENTE TABLET, 40 MG (MILLIGRAM)
  7. LYRICA [Concomitant]
     Active Substance: PREGABALIN
     Dosage: CAPSULE, 150 MG (MILLIGRAM)
  8. POLYETHYLENE GLYCOL 4000 [Concomitant]
     Active Substance: POLYETHYLENE GLYCOL 4000
     Dosage: POEDER VOOR DRANK, 4 G (GRAM)
  9. LANOXIN [Concomitant]
     Active Substance: DIGOXIN
     Dosage: TABLET, 0,125 MG (MILLIGRAM)
  10. METOPROLOL TARTRATE [Concomitant]
     Active Substance: METOPROLOL TARTRATE
     Dosage: TABLET MET GEREGULEERDE AFGIFTE, 50 MG (MILLIGRAM)

REACTIONS (1)
  - Skin ulcer [Recovering/Resolving]
